FAERS Safety Report 16344849 (Version 4)
Quarter: 2019Q4

REPORT INFORMATION
  Report Type: Spontaneous
  Country: US (occurrence: US)
  Receive Date: 20190522
  Receipt Date: 20191014
  Transmission Date: 20200122
  Serious: Yes (Other)
  Sender: FDA-Public Use
  Company Number: US-BEH-2019102717

PATIENT
  Age: 53 Year
  Sex: Female
  Weight: 74.6 kg

DRUGS (14)
  1. HAEGARDA [Suspect]
     Active Substance: HUMAN C1-ESTERASE INHIBITOR
     Indication: HEREDITARY ANGIOEDEMA WITH C1 ESTERASE INHIBITOR DEFICIENCY
     Dosage: 4000 IU, BIW
     Route: 058
     Dates: start: 20180821
  2. BENADRYL [Concomitant]
     Active Substance: DIPHENHYDRAMINE HYDROCHLORIDE
     Dosage: 25 MILLIGRAM, PRN
     Route: 065
     Dates: start: 20120330
  3. CILOSTAZOL. [Concomitant]
     Active Substance: CILOSTAZOL
     Dosage: 100 MILLIGRAM, QD
     Route: 048
     Dates: start: 20160927
  4. LANADELUMAB [Concomitant]
     Active Substance: LANADELUMAB
     Dosage: 300 MILLIGRAM, QMT
     Route: 058
     Dates: start: 20190903
  5. HAEGARDA [Suspect]
     Active Substance: HUMAN C1-ESTERASE INHIBITOR
     Indication: HEREDITARY ANGIOEDEMA
  6. AZELASTINE. [Concomitant]
     Active Substance: AZELASTINE HYDROCHLORIDE
     Dosage: 205.5 MICROGRAM, BID
     Route: 045
     Dates: start: 20190301
  7. EFFIENT [Concomitant]
     Active Substance: PRASUGREL HYDROCHLORIDE
     Dosage: 10 MILLIGRAM, QD
     Route: 048
     Dates: start: 20160406
  8. EPINEPHRINE. [Concomitant]
     Active Substance: EPINEPHRINE
     Indication: HYPERSENSITIVITY
     Dosage: UNK
     Route: 030
     Dates: start: 20180720
  9. MULTIVITAMINS [VITAMINS NOS] [Concomitant]
     Active Substance: VITAMINS
     Dosage: UNK
     Route: 065
     Dates: start: 20120919
  10. NITROSTAT [Concomitant]
     Active Substance: NITROGLYCERIN
     Dosage: 0.4 MILLIGRAM, PRN
     Route: 060
     Dates: start: 20160406
  11. HAEGARDA [Suspect]
     Active Substance: HUMAN C1-ESTERASE INHIBITOR
     Indication: PROPHYLAXIS
     Dosage: 4000 UNITS, BIW
     Route: 058
     Dates: start: 20170821
  12. HAEGARDA [Suspect]
     Active Substance: HUMAN C1-ESTERASE INHIBITOR
     Indication: HEREDITARY ANGIOEDEMA WITH C1 ESTERASE INHIBITOR DEFICIENCY
     Dosage: 4000 UNITS, BIW
     Route: 058
     Dates: start: 20170725
  13. HAEGARDA [Suspect]
     Active Substance: HUMAN C1-ESTERASE INHIBITOR
     Indication: HEREDITARY ANGIOEDEMA
  14. ATORVASTATIN [Concomitant]
     Active Substance: ATORVASTATIN
     Dosage: 80 MILLIGRAM, QD
     Route: 048
     Dates: start: 20160927

REACTIONS (9)
  - Treatment noncompliance [Unknown]
  - Product supply issue [Recovered/Resolved]
  - Drug ineffective [Unknown]
  - Hereditary angioedema [Recovered/Resolved]
  - Hereditary angioedema [Recovered/Resolved]
  - Urinary tract infection [Unknown]
  - No adverse event [Unknown]
  - Product use in unapproved indication [Unknown]
  - Stress [Unknown]

NARRATIVE: CASE EVENT DATE: 201908
